FAERS Safety Report 10378476 (Version 1)
Quarter: 2014Q3

REPORT INFORMATION
  Report Type: Other
  Country: DE (occurrence: DE)
  Receive Date: 20140812
  Receipt Date: 20140812
  Transmission Date: 20150326
  Serious: Yes (Congenital Anomaly)
  Sender: FDA-Public Use
  Company Number: DE-MYLAN-2014M1000812

PATIENT

DRUGS (5)
  1. METFORMIN [Suspect]
     Active Substance: METFORMIN HYDROCHLORIDE
     Indication: POLYCYSTIC OVARIES
     Dosage: 2000 [MG/D ]/ SINCE 2009;
     Route: 064
     Dates: start: 20121005, end: 20130627
  2. BASALINSULIN [Concomitant]
     Indication: GESTATIONAL DIABETES
     Dosage: 16 [IE/D ]
     Route: 064
     Dates: start: 20130327, end: 20130627
  3. FEMIBION SCHWANGERSCHAFT 1 [Concomitant]
     Indication: PROPHYLAXIS OF NEURAL TUBE DEFECT
     Dosage: 0.8 [MG/D ]
     Route: 064
     Dates: start: 20121005, end: 20130327
  4. VIGANTOLETTEN [Concomitant]
     Active Substance: CHOLECALCIFEROL
     Indication: VITAMIN D DEFICIENCY
     Dosage: 1000 [IE/D ]
     Route: 064
     Dates: start: 20121005, end: 20130627
  5. RENNIE [Concomitant]
     Active Substance: MAGNESIUM CARBONATE
     Indication: DYSPEPSIA
     Dosage: 3400 [MG/D ] / 400 [MG/D ]/ ON DEMAND
     Route: 064
     Dates: end: 20130627

REACTIONS (2)
  - Eyelid ptosis congenital [Unknown]
  - Exposure during pregnancy [Unknown]

NARRATIVE: CASE EVENT DATE: 20130628
